FAERS Safety Report 6922095-3 (Version None)
Quarter: 2010Q3

REPORT INFORMATION
  Report Type: 
  Country: None (occurrence: None)
  Receive Date: 20100812
  Receipt Date: 20100802
  Transmission Date: 20110219
  Serious: Yes (Disabling, Other)
  Sender: FDA-Public Use
  Company Number: US-BAYER-201027511NA

PATIENT
  Age: 44 Year
  Sex: Female

DRUGS (4)
  1. BETASERON [Suspect]
     Indication: RELAPSING-REMITTING MULTIPLE SCLEROSIS
     Route: 058
     Dates: start: 20090415, end: 20100306
  2. BETASERON [Suspect]
     Dosage: TOTAL DAILY DOSE: 4 MIU
     Route: 058
     Dates: start: 20100608
  3. BETASERON [Suspect]
     Dosage: TOTAL DAILY DOSE: 8 MIU
     Route: 058
  4. XANAX [Concomitant]

REACTIONS (11)
  - DIPLOPIA [None]
  - EPISTAXIS [None]
  - FACE INJURY [None]
  - FALL [None]
  - HEAD INJURY [None]
  - MUSCULOSKELETAL PAIN [None]
  - NIGHT BLINDNESS [None]
  - PYREXIA [None]
  - URINARY TRACT INFECTION [None]
  - VISION BLURRED [None]
  - VISUAL ACUITY REDUCED [None]
